FAERS Safety Report 7687841-2 (Version None)
Quarter: 2011Q3

REPORT INFORMATION
  Report Type: 
  Country: None (occurrence: None)
  Receive Date: 20110817
  Receipt Date: 20110809
  Transmission Date: 20111222
  Serious: Yes (Other)
  Sender: FDA-Public Use
  Company Number: JP-ASTELLAS-2011JP005533

PATIENT
  Age: 38 Year
  Sex: Female

DRUGS (7)
  1. PROGRAF [Suspect]
     Dosage: 1 MG, UNKNOWN/D
     Route: 048
  2. DIOVAN [Concomitant]
     Dosage: 80 MG, UNKNOWN/D
     Route: 048
  3. LEVOTHYROXINE SODIUM [Concomitant]
     Dosage: 25 UG, UNKNOWN/D
     Route: 048
  4. CALCIUM CARBONATE [Concomitant]
     Dosage: 500 MG, UNKNOWN/D
     Route: 048
  5. PREDNISOLONE [Concomitant]
     Dosage: 12 MG, UNKNOWN/D
     Route: 048
  6. PROGRAF [Suspect]
     Dosage: 3 MG, UNKNOWN/D
     Route: 048
     Dates: start: 20101217
  7. OMEPRAZOLE [Concomitant]
     Dosage: 20 MG, UNKNOWN/D
     Route: 048

REACTIONS (1)
  - VASCULAR CALCIFICATION [None]
